FAERS Safety Report 5518994-X (Version None)
Quarter: 2007Q4

REPORT INFORMATION
  Report Type: 
  Country: None (occurrence: None)
  Receive Date: 20071116
  Receipt Date: 20071109
  Transmission Date: 20080405
  Serious: Yes (Hospitalization)
  Sender: FDA-Public Use
  Company Number: PHBS2007JP16449

PATIENT
  Age: 71 Year
  Sex: Male

DRUGS (3)
  1. TEGRETOL [Suspect]
     Dosage: 200 MG/DAY
     Route: 048
  2. RIVOTRIL [Suspect]
     Dosage: 2 TABLETS/DAY
     Route: 048
  3. DEPAS [Suspect]
     Dosage: 2 TABLETS/DAY
     Route: 048

REACTIONS (4)
  - FALL [None]
  - FREEZING PHENOMENON [None]
  - PARKINSON'S DISEASE [None]
  - TREMOR [None]
